FAERS Safety Report 15942286 (Version 2)
Quarter: 2019Q1

REPORT INFORMATION
  Report Type: Report from Study
  Country: JP (occurrence: JP)
  Receive Date: 20190209
  Receipt Date: 20190304
  Transmission Date: 20190417
  Serious: Yes (Death)
  Sender: FDA-Public Use
  Company Number: JP-AMGEN-JPNCT2019020600

PATIENT
  Age: 92 Year
  Sex: Female

DRUGS (26)
  1. ROMIPLOSTIM [Suspect]
     Active Substance: ROMIPLOSTIM
     Dosage: 4 MUG/KG, QWK
     Route: 058
     Dates: start: 20121112, end: 20121120
  2. EDIROL [Concomitant]
     Active Substance: ELDECALCITOL
     Indication: PROPHYLAXIS
     Dosage: UNK
     Route: 048
  3. ITOROL [Concomitant]
     Active Substance: ISOSORBIDE MONONITRATE
     Indication: ANGINA PECTORIS
     Dosage: UNK
     Route: 048
  4. ROMIPLOSTIM [Suspect]
     Active Substance: ROMIPLOSTIM
     Dosage: 5 MUG/KG, QWK
     Route: 058
     Dates: start: 20121127, end: 20121225
  5. PREDNISOLONE. [Concomitant]
     Active Substance: PREDNISOLONE
     Dosage: 1 MG, UNK
     Route: 048
     Dates: start: 20130827, end: 20130923
  6. DIOVAN [Concomitant]
     Active Substance: VALSARTAN
     Indication: HYPERTENSION
     Dosage: UNK
     Route: 048
  7. TAKEPRON [Concomitant]
     Active Substance: LANSOPRAZOLE
     Indication: PROPHYLAXIS
     Dosage: UNK
     Route: 048
  8. FERRUM [Concomitant]
     Active Substance: FERROUS FUMARATE
     Indication: IRON DEFICIENCY ANAEMIA
     Dosage: UNK
     Route: 048
  9. ROMIPLOSTIM [Suspect]
     Active Substance: ROMIPLOSTIM
     Indication: IMMUNE THROMBOCYTOPENIC PURPURA
     Dosage: 1 MUG/KG, UNK
     Route: 058
     Dates: start: 20120904, end: 20120904
  10. PREDNISOLONE. [Concomitant]
     Active Substance: PREDNISOLONE
     Indication: IMMUNE THROMBOCYTOPENIC PURPURA
     Dosage: 5 MG, UNK
     Route: 048
     Dates: start: 20120806, end: 20121111
  11. ALFAROL [Concomitant]
     Active Substance: ALFACALCIDOL
     Indication: PROPHYLAXIS
     Dosage: UNK
     Route: 048
  12. ROMIPLOSTIM [Suspect]
     Active Substance: ROMIPLOSTIM
     Dosage: 3 MUG/KG, QWK
     Route: 058
     Dates: start: 20121004, end: 20121015
  13. PREDNISOLONE. [Concomitant]
     Active Substance: PREDNISOLONE
     Dosage: 4 MG, UNK
     Route: 048
     Dates: start: 20121112, end: 20121210
  14. PREDNISOLONE. [Concomitant]
     Active Substance: PREDNISOLONE
     Dosage: 3 MG, UNK
     Route: 048
     Dates: start: 20121211, end: 20130527
  15. ROMIPLOSTIM [Suspect]
     Active Substance: ROMIPLOSTIM
     Dosage: 2 MUG/KG, QWK
     Route: 058
     Dates: start: 20120912, end: 20120926
  16. ROMIPLOSTIM [Suspect]
     Active Substance: ROMIPLOSTIM
     Dosage: 5 MUG/KG, QWK
     Route: 058
     Dates: start: 20130108, end: 20130116
  17. ROMIPLOSTIM [Suspect]
     Active Substance: ROMIPLOSTIM
     Dosage: 6 MUG/KG, QWK
     Route: 058
     Dates: start: 20130226, end: 20130604
  18. PREDNISOLONE. [Concomitant]
     Active Substance: PREDNISOLONE
     Dosage: 2 MG, UNK
     Route: 048
     Dates: start: 20130528, end: 20130826
  19. NITROPEN [Concomitant]
     Active Substance: NITROGLYCERIN
     Indication: ANGINA PECTORIS
     Dosage: UNK
     Route: 060
  20. ROMIPLOSTIM [Suspect]
     Active Substance: ROMIPLOSTIM
     Dosage: 4 MUG/KG, QWK
     Route: 058
     Dates: start: 20121025, end: 20121108
  21. ROMIPLOSTIM [Suspect]
     Active Substance: ROMIPLOSTIM
     Dosage: 5 MUG/KG, UNK
     Route: 058
     Dates: start: 20121229, end: 20121229
  22. ROMIPLOSTIM [Suspect]
     Active Substance: ROMIPLOSTIM
     Dosage: 5 MUG/KG, QWK
     Route: 058
     Dates: start: 20130121, end: 20130219
  23. ROMIPLOSTIM [Suspect]
     Active Substance: ROMIPLOSTIM
     Dosage: 7 MUG/KG, QWK
     Route: 058
     Dates: start: 20130611, end: 20130903
  24. AMLODIN [Concomitant]
     Active Substance: AMLODIPINE BESYLATE
     Indication: HYPERTENSION
     Dosage: UNK
     Route: 048
  25. CINAL [Concomitant]
     Active Substance: ASCORBIC ACID\CALCIUM PANTOTHENATE
     Indication: PROPHYLAXIS
     Dosage: UNK
     Route: 048
  26. LASIX [Concomitant]
     Active Substance: FUROSEMIDE
     Indication: HYPERTENSION
     Dosage: UNK
     Route: 065

REACTIONS (1)
  - Aortic stenosis [Fatal]

NARRATIVE: CASE EVENT DATE: 20131030
